FAERS Safety Report 6260382-5 (Version None)
Quarter: 2009Q3

REPORT INFORMATION
  Report Type: 
  Country: None (occurrence: None)
  Receive Date: 20090708
  Receipt Date: 20090624
  Transmission Date: 20100115
  Serious: Yes (Hospitalization)
  Sender: FDA-Public Use
  Company Number: JP-ABBOTT-09P-087-0583680-00

PATIENT
  Age: 81 Year
  Sex: Female

DRUGS (12)
  1. LEUPLIN SR FOR INJECTION 11.25 MG [Suspect]
     Indication: PROSTATE CANCER STAGE II
     Route: 058
     Dates: start: 20060703
  2. CASODEX [Concomitant]
     Indication: PROSTATE CANCER STAGE II
     Route: 048
     Dates: start: 20060208, end: 20070109
  3. HALF DIGOXIN [Concomitant]
     Indication: DRUG USE FOR UNKNOWN INDICATION
     Route: 048
  4. LASIX [Concomitant]
     Indication: DRUG USE FOR UNKNOWN INDICATION
     Route: 048
  5. ASPIRIN [Concomitant]
     Indication: CARDIAC FAILURE
     Route: 048
  6. ASPIRIN [Concomitant]
     Indication: CARDIAC ASSISTANCE DEVICE USER
  7. NORVASC [Concomitant]
     Indication: DRUG USE FOR UNKNOWN INDICATION
     Route: 048
  8. WARFARIN SODIUM [Concomitant]
     Indication: CARDIAC FAILURE
     Route: 048
     Dates: end: 20070105
  9. WARFARIN SODIUM [Concomitant]
     Indication: CARDIAC ASSISTANCE DEVICE USER
     Route: 048
     Dates: start: 20070106, end: 20070114
  10. WARFARIN SODIUM [Concomitant]
     Route: 048
     Dates: start: 20070115
  11. PENFILL 30R [Concomitant]
     Indication: DRUG USE FOR UNKNOWN INDICATION
     Dosage: 34 UT (34 UT, 1D)
     Route: 058
  12. PERINDOPRIL ERBUMINE [Concomitant]
     Indication: HYPERTENSION
     Route: 048

REACTIONS (2)
  - ARTERIOSCLEROSIS OBLITERANS [None]
  - CEREBRAL INFARCTION [None]
